FAERS Safety Report 8435345-1 (Version None)
Quarter: 2012Q2

REPORT INFORMATION
  Report Type: 
  Country: None (occurrence: None)
  Receive Date: 20120614
  Receipt Date: 20120606
  Transmission Date: 20120825
  Serious: Yes (Hospitalization)
  Sender: FDA-Public Use
  Company Number: US-JNJFOC-20120413226

PATIENT
  Age: 9 Decade
  Sex: Female

DRUGS (2)
  1. XARELTO [Suspect]
     Indication: ATRIAL FIBRILLATION
     Route: 048
     Dates: start: 20120101
  2. XARELTO [Suspect]
     Route: 048
     Dates: start: 20120101

REACTIONS (2)
  - COLON NEOPLASM [None]
  - HAEMOGLOBIN DECREASED [None]
